FAERS Safety Report 8158470-1 (Version None)
Quarter: 2012Q1

REPORT INFORMATION
  Report Type: 
  Country: None (occurrence: None)
  Receive Date: 20120223
  Receipt Date: 20120214
  Transmission Date: 20120608
  Serious: Yes (Other)
  Sender: FDA-Public Use
  Company Number: US-JNJFOC-20120202924

PATIENT
  Age: 62 Year
  Sex: Male

DRUGS (4)
  1. FENTANYL-100 [Suspect]
     Indication: BACK PAIN
     Route: 062
  2. FENTANYL-100 [Suspect]
     Route: 062
  3. ARIPIPRAZOLE [Concomitant]
     Indication: DEPRESSION
     Route: 065
  4. DULOXETIME HYDROCHLORIDE [Concomitant]
     Indication: DEPRESSION
     Route: 065

REACTIONS (5)
  - PAIN [None]
  - INTENTIONAL DRUG MISUSE [None]
  - DRUG ABUSER [None]
  - INSOMNIA [None]
  - DEPRESSION [None]
